FAERS Safety Report 5618787-9 (Version None)
Quarter: 2008Q1

REPORT INFORMATION
  Report Type: 
  Country: None (occurrence: None)
  Receive Date: 20080207
  Receipt Date: 20080206
  Transmission Date: 20080703
  Serious: Yes (Death, Other)
  Sender: FDA-Public Use
  Company Number: GB-BRISTOL-MYERS SQUIBB COMPANY-14066823

PATIENT
  Age: 5 Decade
  Sex: Male

DRUGS (4)
  1. EFAVIRENZ [Suspect]
     Route: 048
     Dates: start: 20071001
  2. ATRIPLA [Suspect]
     Route: 048
     Dates: start: 20080101
  3. EMTRICITABINE [Suspect]
     Route: 048
     Dates: start: 20071001
  4. TENOFOVIR DISOPROXIL FUMARATE [Suspect]
     Route: 048
     Dates: start: 20071001

REACTIONS (3)
  - DEATH [None]
  - HAEMOLYTIC ANAEMIA [None]
  - HODGKIN'S DISEASE [None]
